FAERS Safety Report 19160622 (Version 2)
Quarter: 2021Q2

REPORT INFORMATION
  Report Type: Report from Study
  Country: US (occurrence: US)
  Receive Date: 20210420
  Receipt Date: 20210527
  Transmission Date: 20210717
  Serious: Yes (Other)
  Sender: FDA-Public Use
  Company Number: US-B.I. PHARMACEUTICALS,INC./RIDGEFIELD-2020-BI-072288

PATIENT
  Age: 58 Year
  Sex: Male

DRUGS (3)
  1. OFEV [Suspect]
     Active Substance: NINTEDANIB
     Dosage: 100 MG QD
     Route: 048
     Dates: end: 20210323
  2. OFEV [Suspect]
     Active Substance: NINTEDANIB
     Indication: IDIOPATHIC PULMONARY FIBROSIS
     Route: 048
     Dates: start: 202010, end: 20210205
  3. OFEV [Suspect]
     Active Substance: NINTEDANIB
     Route: 048
     Dates: start: 20210129, end: 20210315

REACTIONS (15)
  - Vomiting [Recovering/Resolving]
  - Feeling abnormal [Not Recovered/Not Resolved]
  - Hyperhidrosis [Unknown]
  - Abdominal discomfort [Unknown]
  - Idiopathic pulmonary fibrosis [Not Recovered/Not Resolved]
  - Illness [Not Recovered/Not Resolved]
  - Burning sensation [Unknown]
  - Drug ineffective [Unknown]
  - Hyperventilation [Unknown]
  - Dyspepsia [Unknown]
  - Chills [Not Recovered/Not Resolved]
  - Retching [Recovering/Resolving]
  - Nausea [Recovering/Resolving]
  - Diarrhoea [Unknown]
  - Gastrooesophageal reflux disease [Unknown]
